FAERS Safety Report 11112046 (Version 1)
Quarter: 2015Q2

REPORT INFORMATION
  Report Type: Spontaneous
  Country: JP (occurrence: JP)
  Receive Date: 20150514
  Receipt Date: 20150514
  Transmission Date: 20150821
  Serious: Yes (Other)
  Sender: FDA-Public Use
  Company Number: JP-SUN PHARMACEUTICAL INDUSTRIES LTD-2015RR-96360

PATIENT
  Sex: Female

DRUGS (2)
  1. FLURBIPROFEN. [Suspect]
     Active Substance: FLURBIPROFEN
     Dosage: UNK
     Route: 042
  2. CELECOX [Suspect]
     Active Substance: CELECOXIB
     Indication: PRODUCT USED FOR UNKNOWN INDICATION
     Dosage: 400 MG INITIAL DOSE, THEN 200 MG DAILY
     Route: 048

REACTIONS (1)
  - Cerebral infarction [Recovered/Resolved]
